FAERS Safety Report 20910153 (Version 6)
Quarter: 2024Q3

REPORT INFORMATION
  Report Type: Spontaneous
  Country: US (occurrence: US)
  Receive Date: 20220603
  Receipt Date: 20240712
  Transmission Date: 20241017
  Serious: Yes (Hospitalization)
  Sender: PAREXEL
  Company Number: US-AVEO ONCOLOGY-2022-AVEO-US000187

PATIENT

DRUGS (27)
  1. FOTIVDA [Suspect]
     Active Substance: TIVOZANIB HYDROCHLORIDE
     Indication: Renal cell carcinoma
     Dosage: 1.34 MG DAILY FOR 21 DAYS THEN 7 DAYS OFF
     Route: 048
     Dates: start: 20211029, end: 20220514
  2. FOTIVDA [Suspect]
     Active Substance: TIVOZANIB HYDROCHLORIDE
     Dosage: 0.89 MG DAILY FOR 21 DAYS THEN 7 DAYS OFF
     Route: 048
     Dates: start: 202205
  3. ALLOPURINOL [Concomitant]
     Active Substance: ALLOPURINOL
     Dosage: 150 MG, DAILY
     Route: 048
  4. AMBIEN [Concomitant]
     Active Substance: ZOLPIDEM TARTRATE
     Indication: Insomnia
     Dosage: 10 MG, PRN AT BEDTIME
     Route: 048
  5. CREON [Concomitant]
     Active Substance: PANCRELIPASE AMYLASE\PANCRELIPASE LIPASE\PANCRELIPASE PROTEASE
     Dosage: 12,000-38,000 -60,000 CAPSULE: TAKE 1 CAPSULE WITH SNACK
     Route: 048
  6. CRESEMBA [Concomitant]
     Active Substance: ISAVUCONAZONIUM SULFATE
     Dosage: 186 MG 2 CAPSULES TID FOR 2 DAYS, THEN 2 CAPSULES DAILY
     Route: 048
  7. DEXAMETHASONE [Concomitant]
     Active Substance: DEXAMETHASONE
     Dosage: 10 ML, QID
     Route: 048
  8. DOXAZOSIN [Concomitant]
     Active Substance: DOXAZOSIN MESYLATE
     Dosage: 2 MG, DAILY
     Route: 048
  9. FERROUS SULFATE [Concomitant]
     Active Substance: FERROUS SULFATE
     Dosage: 325 MG
     Route: 048
  10. HUMALOG [Concomitant]
     Active Substance: INSULIN LISPRO
     Dosage: 4 UNITS, TID BEFORE MEALS
     Route: 058
  11. IPRATROPIUM BROMIDE [Concomitant]
     Active Substance: IPRATROPIUM BROMIDE\IPRATROPIUM BROMIDE ANHYDROUS
     Dosage: 21 UG 2 SPRAYS IN EACH NOSTRIL, BID
     Route: 045
  12. LANTUS [Concomitant]
     Active Substance: INSULIN GLARGINE
     Dosage: 6 UNITS
     Route: 058
  13. LEVOTHYROXINE [Concomitant]
     Active Substance: LEVOTHYROXINE\LEVOTHYROXINE SODIUM
     Dosage: 25 UG, DAILY, 30 MINUTES BEFORE BREAKFAST
     Route: 048
  14. LISINOPRIL [Concomitant]
     Active Substance: LISINOPRIL
  15. LOVASTATIN [Concomitant]
     Active Substance: LOVASTATIN
     Dosage: 40 MG, DAILY
     Route: 048
  16. ONDANSETRON [Concomitant]
     Active Substance: ONDANSETRON
     Indication: Nausea
     Dosage: 8 MG, PRN Q8HR
     Route: 048
  17. ONDANSETRON [Concomitant]
     Active Substance: ONDANSETRON
     Indication: Vomiting
  18. OXYCODONE [Concomitant]
     Active Substance: OXYCODONE
     Dosage: 5 MG, PRN Q4HR
     Route: 048
  19. PANTOPRAZOLE [Concomitant]
     Active Substance: PANTOPRAZOLE
     Dosage: 40 MG, DAILY AT BEDTIME
     Route: 048
  20. ASPIRIN [Concomitant]
     Active Substance: ASPIRIN
     Dosage: 81 MG
     Route: 048
  21. EMLA [Concomitant]
     Active Substance: LIDOCAINE\PRILOCAINE
     Dosage: 2.5/2.5% CREAM, PRN
     Route: 061
  22. MELATONIN [Concomitant]
     Active Substance: MELATONIN
     Dosage: 1 TABLET
     Route: 048
  23. OMEPRAZOLE [Concomitant]
     Active Substance: OMEPRAZOLE
     Dosage: 20 MG
  24. KENALOG [Concomitant]
     Active Substance: TRIAMCINOLONE ACETONIDE
     Dosage: 0.1%, PRN BID
     Route: 061
  25. FLONASE [Concomitant]
     Active Substance: FLUTICASONE PROPIONATE
     Dosage: 50 UG SPRAYS EACH NOSTRIL DAILY
     Route: 045
  26. LIDOCAINE\PRILOCAINE [Concomitant]
     Active Substance: LIDOCAINE\PRILOCAINE
  27. INSULIN NOS [Concomitant]
     Active Substance: INSULIN NOS

REACTIONS (22)
  - Fall [Unknown]
  - Dyspnoea [Recovered/Resolved]
  - Acute kidney injury [Recovered/Resolved]
  - Lethargy [Recovering/Resolving]
  - Musculoskeletal chest pain [Unknown]
  - Fatigue [Not Recovered/Not Resolved]
  - Dysphonia [Unknown]
  - Hypothyroidism [Not Recovered/Not Resolved]
  - Diarrhoea [Recovered/Resolved]
  - Dyspnoea exertional [Recovering/Resolving]
  - Abdominal pain lower [Recovered/Resolved]
  - Asthenia [Not Recovered/Not Resolved]
  - Chest pain [Recovered/Resolved]
  - Lung infiltration [Not Recovered/Not Resolved]
  - Hyperglycaemia [Unknown]
  - Gait disturbance [Unknown]
  - Upper-airway cough syndrome [Unknown]
  - Rhinorrhoea [Unknown]
  - Metastases to lung [Not Recovered/Not Resolved]
  - Malnutrition [Recovering/Resolving]
  - Pleural effusion [Unknown]
  - Cough [Recovered/Resolved]

NARRATIVE: CASE EVENT DATE: 20220518
